FAERS Safety Report 7126516-5 (Version None)
Quarter: 2010Q4

REPORT INFORMATION
  Report Type: 
  Country: None (occurrence: None)
  Receive Date: 20101129
  Receipt Date: 20100921
  Transmission Date: 20110411
  Serious: No
  Sender: FDA-Public Use
  Company Number: US-MYLANLABS-2010S1017504

PATIENT
  Age: 69 Year
  Sex: Male

DRUGS (5)
  1. LANSOPRAZOLE [Suspect]
     Indication: GASTROOESOPHAGEAL REFLUX DISEASE
     Route: 048
     Dates: start: 20091101, end: 20100501
  2. WARFARIN SODIUM [Concomitant]
  3. BENICAR [Concomitant]
  4. PROPRANOLOL [Concomitant]
  5. NIFEDIPINE [Concomitant]

REACTIONS (4)
  - BLOOD DISORDER [None]
  - DECREASED APPETITE [None]
  - DIZZINESS [None]
  - WEIGHT DECREASED [None]
